FAERS Safety Report 6292606-2 (Version None)
Quarter: 2009Q3

REPORT INFORMATION
  Report Type: 
  Country: None (occurrence: None)
  Receive Date: 20090731
  Receipt Date: 20090721
  Transmission Date: 20100115
  Serious: Yes (Other)
  Sender: FDA-Public Use
  Company Number: GB-JNJFOC-20090707032

PATIENT

DRUGS (2)
  1. INFLIXIMAB [Suspect]
     Indication: VASCULITIS
     Dosage: 2 DOSES FORTNIGHT APART
     Route: 042
  2. CYCLOPHOSPHAMIDE [Concomitant]
     Indication: VASCULITIS
     Dosage: 500MG/M^2 6 MONTHLY PULSES
     Route: 042

REACTIONS (3)
  - BRAIN ABSCESS [None]
  - INTESTINAL INFARCTION [None]
  - INTESTINAL PERFORATION [None]
